FAERS Safety Report 17588420 (Version 2)
Quarter: 2020Q2

REPORT INFORMATION
  Report Type: Spontaneous
  Country: JP (occurrence: JP)
  Receive Date: 20200327
  Receipt Date: 20200410
  Transmission Date: 20200713
  Serious: Yes (Hospitalization, Other)
  Sender: FDA-Public Use
  Company Number: JP-ALEXION PHARMACEUTICALS INC.-A202003942

PATIENT

DRUGS (2)
  1. SOLIRIS [Suspect]
     Active Substance: ECULIZUMAB
     Indication: PAROXYSMAL NOCTURNAL HAEMOGLOBINURIA
     Dosage: 600 MG, QW
     Route: 042
     Dates: start: 20180809, end: 20180830
  2. SOLIRIS [Suspect]
     Active Substance: ECULIZUMAB
     Dosage: 900 MG, Q2W
     Route: 042
     Dates: start: 20180906, end: 20200305

REACTIONS (6)
  - Chronic kidney disease [Unknown]
  - Adenocarcinoma [Unknown]
  - Malignant pleural effusion [Unknown]
  - Cardiac failure [Unknown]
  - Infection [Not Recovered/Not Resolved]
  - Malignant ascites [Unknown]

NARRATIVE: CASE EVENT DATE: 202002
